FAERS Safety Report 6784132-9 (Version None)
Quarter: 2010Q2

REPORT INFORMATION
  Report Type: 
  Country: None (occurrence: None)
  Receive Date: 20100622
  Receipt Date: 20100607
  Transmission Date: 20101027
  Serious: Yes (Death, Other)
  Sender: FDA-Public Use
  Company Number: US-PFIZER INC-2009222778

PATIENT
  Sex: Male
  Weight: 48 kg

DRUGS (4)
  1. CHANTIX [Suspect]
     Indication: SMOKING CESSATION THERAPY
     Dosage: 0.5 MG, 1X/DAY
     Route: 048
     Dates: start: 20080101, end: 20080401
  2. CHANTIX [Suspect]
     Dosage: 1 MG, 2X/DAY
     Dates: start: 20080701, end: 20090519
  3. LIPITOR [Concomitant]
     Indication: HYPERCHOLESTEROLAEMIA
     Dosage: 40 MG, 1X/DAY
     Route: 048
     Dates: start: 20080101, end: 20090101
  4. IBUPROFEN [Concomitant]
     Indication: ARTHRITIS
     Dosage: 600 MG, 4X/DAY
     Dates: start: 20080101, end: 20090101

REACTIONS (6)
  - ABNORMAL DREAMS [None]
  - AGITATION [None]
  - BRONCHITIS [None]
  - COMPLETED SUICIDE [None]
  - DEPRESSION [None]
  - IRRITABILITY [None]
